FAERS Safety Report 4635466-5 (Version None)
Quarter: 2005Q2

REPORT INFORMATION
  Report Type: 
  Country: None (occurrence: None)
  Receive Date: 20050413
  Receipt Date: 20050317
  Transmission Date: 20051028
  Serious: Yes (Other)
  Sender: FDA-Public Use
  Company Number: 800317

PATIENT
  Age: 16 Year
  Sex: Female

DRUGS (6)
  1. DIANEAL PD-2 W/ DEXTROSE 1.5% [Suspect]
     Dosage: INTRAPERITONEAL
  2. ROCALTROL [Concomitant]
  3. EPOGEN [Concomitant]
  4. NEPHROVITE RX [Concomitant]
  5. PROZAC [Concomitant]
  6. PHOSLO [Concomitant]

REACTIONS (4)
  - DEVICE FAILURE [None]
  - DRUG HYPERSENSITIVITY [None]
  - PERITONITIS [None]
  - PSEUDOMONAS INFECTION [None]
